FAERS Safety Report 15526112 (Version 1)
Quarter: 2018Q4

REPORT INFORMATION
  Report Type: Spontaneous
  Country: US (occurrence: US)
  Receive Date: 20181018
  Receipt Date: 20181018
  Transmission Date: 20190205
  Serious: No
  Sender: FDA-Public Use
  Company Number: US-TEVA-2018-US-962905

PATIENT
  Sex: Female

DRUGS (1)
  1. CLONATAB-A ACTAVIS [Suspect]
     Active Substance: CLONAZEPAM
     Route: 065
     Dates: start: 20181001

REACTIONS (2)
  - Product substitution issue [Unknown]
  - Drug ineffective [Unknown]

NARRATIVE: CASE EVENT DATE: 20181001
